FAERS Safety Report 8065694 (Version 2)
Quarter: 2012Q4

REPORT INFORMATION
  Report Type: 
  Country: US (occurrence: US)
  Receive Date: 20110802
  Receipt Date: 20121014
  Transmission Date: 20130627
  Serious: Yes (Other)
  Sender: FDA-Public Use
  Company Number: US-US-EMD SERONO, INC.-7073353

PATIENT
  Age: 62 None
  Sex: Female

DRUGS (1)
  1. REBIF [Suspect]
     Indication: MULTIPLE SCLEROSIS
     Route: 058
     Dates: start: 20070310, end: 201103

REACTIONS (3)
  - Cataract [Recovered/Resolved]
  - Multiple sclerosis [Unknown]
  - Hepatic enzyme increased [Not Recovered/Not Resolved]
